FAERS Safety Report 5613550-7 (Version None)
Quarter: 2008Q1

REPORT INFORMATION
  Report Type: 
  Country: None (occurrence: None)
  Receive Date: 20080205
  Receipt Date: 20080125
  Transmission Date: 20080703
  Serious: Yes (Other)
  Sender: FDA-Public Use
  Company Number: US-ELI_LILLY_AND_COMPANY-US200801005606

PATIENT
  Age: 28 Year
  Sex: Male

DRUGS (7)
  1. ZYPREXA [Suspect]
     Indication: BIPOLAR I DISORDER
     Dosage: 20 MG, UNK
     Dates: start: 20040101, end: 20040701
  2. ZYPREXA [Suspect]
     Dosage: 10 MG, UNK
     Dates: start: 20040101
  3. ZYPREXA [Suspect]
     Dosage: 40 MG, UNK
     Dates: start: 20080101
  4. THORAZINE [Concomitant]
     Dosage: 600 MG, UNK
  5. ATIVAN [Concomitant]
     Dosage: UNK, AS NEEDED
  6. RISPERIDONE [Concomitant]
  7. ANTIPSYCHOTICS [Concomitant]

REACTIONS (8)
  - CONDUCTION DISORDER [None]
  - CONFUSIONAL STATE [None]
  - DELUSION [None]
  - HYPERHIDROSIS [None]
  - LEFT ATRIAL DILATATION [None]
  - OVERDOSE [None]
  - SINUS ARRHYTHMIA [None]
  - WEIGHT INCREASED [None]
